FAERS Safety Report 23069941 (Version 8)
Quarter: 2023Q4

REPORT INFORMATION
  Report Type: Report from Study
  Country: FR (occurrence: FR)
  Receive Date: 20231016
  Receipt Date: 20231130
  Transmission Date: 20240109
  Serious: Yes (Death, Hospitalization, Other)
  Sender: FDA-Public Use
  Company Number: FR-BAXTER-2023BAX031915

PATIENT
  Age: 77 Year
  Sex: Male
  Weight: 105 kg

DRUGS (51)
  1. DOXORUBICIN HYDROCHLORIDE [Suspect]
     Active Substance: DOXORUBICIN HYDROCHLORIDE
     Indication: Diffuse large B-cell lymphoma
     Dosage: CYCLE 1 DAY 1
     Route: 042
     Dates: start: 20230816
  2. VINCRISTINE SULFATE [Suspect]
     Active Substance: VINCRISTINE SULFATE
     Indication: Diffuse large B-cell lymphoma
     Dosage: CYCLE 1 DAY 1
     Route: 042
     Dates: start: 20230816
  3. RITUXIMAB [Suspect]
     Active Substance: RITUXIMAB
     Indication: Diffuse large B-cell lymphoma
     Dosage: CYCLE 1 DAY 1
     Route: 042
     Dates: start: 20230816
  4. CYCLOPHOSPHAMIDE [Suspect]
     Active Substance: CYCLOPHOSPHAMIDE
     Indication: Diffuse large B-cell lymphoma
     Dosage: CYCLE 1 DAY 1
     Route: 042
     Dates: start: 20230816
  5. PREDNISONE [Suspect]
     Active Substance: PREDNISONE
     Indication: Diffuse large B-cell lymphoma
     Dosage: DAILY C1-6, DAY 1-5, EVERY 1 DAYS
     Route: 048
     Dates: start: 20230816
  6. EPCORITAMAB [Suspect]
     Active Substance: EPCORITAMAB
     Indication: Diffuse large B-cell lymphoma
     Dosage: 0.16 MG PRIMING DOSE C1, D1, TOTAL
     Route: 058
     Dates: start: 20230816, end: 20230816
  7. EPCORITAMAB [Suspect]
     Active Substance: EPCORITAMAB
     Dosage: 0.8 MG INTERMEDIATE DOSE C1, D8, TOTAL
     Route: 058
     Dates: start: 20230823, end: 20230823
  8. DAPTOMYCIN [Concomitant]
     Active Substance: DAPTOMYCIN
     Indication: Staphylococcal infection
     Dosage: 1000 MG, EVERY 1 DAYS
     Route: 065
     Dates: start: 20230824, end: 20230824
  9. DAPTOMYCIN [Concomitant]
     Active Substance: DAPTOMYCIN
     Dosage: 1000 MG, 4/DAYS
     Dates: start: 20230901
  10. HYDROCHLOROTHIAZIDE [Concomitant]
     Active Substance: HYDROCHLOROTHIAZIDE
     Indication: Hypertension
     Dosage: 12.5 MG, EVERY 1 DAYS
     Route: 065
     Dates: end: 20230924
  11. FILGRASTIM [Concomitant]
     Active Substance: FILGRASTIM
     Indication: Aplasia
     Dosage: 24 MU/L, EVERY 1 DAYS
     Dates: start: 20230821
  12. NEFOPAM [Concomitant]
     Active Substance: NEFOPAM
     Indication: Abdominal pain
     Dosage: 20 MG OCCASIONAL, AS NECESSARY
     Route: 065
     Dates: start: 20230812
  13. NEFOPAM [Concomitant]
     Active Substance: NEFOPAM
     Indication: Chest pain
  14. AMITRIPTYLINE [Concomitant]
     Active Substance: AMITRIPTYLINE
     Indication: Sleep disorder
     Dosage: 5 DROPS, EVERY 1 DAYS
     Dates: start: 20230809, end: 20230814
  15. ATORVASTATIN CALCIUM [Concomitant]
     Active Substance: ATORVASTATIN CALCIUM
     Indication: Dyslipidaemia
     Dosage: 10 MG, EVERY 1 DAYS
     Route: 065
     Dates: start: 20230809, end: 20230902
  16. CANDESARTAN CILEXETIL [Concomitant]
     Active Substance: CANDESARTAN CILEXETIL
     Indication: Hypertension
     Dosage: 16 MG, EVERY 1 DAYS
     Route: 065
     Dates: end: 20230824
  17. POLYETHYLENE GLYCOLS [Concomitant]
     Active Substance: POLYETHYLENE GLYCOLS
     Indication: Constipation prophylaxis
     Dosage: 10 G, 3X/DAY
     Route: 065
     Dates: start: 20230814, end: 20230907
  18. TERBUTALINE [Concomitant]
     Active Substance: TERBUTALINE
     Indication: Oxygen therapy
     Dosage: 5 MG, TOTAL
     Dates: start: 20230824, end: 20230824
  19. PANTOPRAZOLE SODIUM [Concomitant]
     Active Substance: PANTOPRAZOLE SODIUM
     Indication: Prophylaxis against gastrointestinal ulcer
     Dosage: 20 MG, EVERY 1 DAYS
     Route: 065
     Dates: start: 20230809
  20. IRON [Concomitant]
     Active Substance: IRON
     Indication: Anaemia prophylaxis
     Dosage: 66 MG, 2X/DAY
     Route: 065
     Dates: start: 20230809, end: 20230829
  21. ALLOPURINOL [Concomitant]
     Active Substance: ALLOPURINOL
     Indication: Hyperuricaemia
     Dosage: 100 MG, 3X/DAY
     Route: 065
     Dates: start: 20230809, end: 20230828
  22. SKENAN [Concomitant]
     Active Substance: MORPHINE SULFATE
     Indication: Abdominal pain
     Dosage: 60 MG, EVERY 1 DAYS
     Route: 065
     Dates: start: 20230823
  23. SKENAN [Concomitant]
     Active Substance: MORPHINE SULFATE
     Indication: Chest pain
  24. MORPHINE SULFATE [Concomitant]
     Active Substance: MORPHINE SULFATE
     Indication: Abdominal pain
     Dosage: 5 MG, AS NECESSARY
     Route: 065
     Dates: start: 20230823
  25. MORPHINE SULFATE [Concomitant]
     Active Substance: MORPHINE SULFATE
     Indication: Chest pain
  26. TAZOBACTAM [Concomitant]
     Active Substance: TAZOBACTAM
     Indication: Febrile bone marrow aplasia
     Dosage: 0.5 G, EVERY 6 HOURS
     Dates: start: 20230824, end: 20230825
  27. APIXABAN [Concomitant]
     Active Substance: APIXABAN
     Indication: Arrhythmia
     Dosage: 5 MG, 2/DAYS
     Route: 065
     Dates: end: 20230828
  28. APIXABAN [Concomitant]
     Active Substance: APIXABAN
     Dosage: 2.5 G, 2/DAYS
     Route: 065
     Dates: start: 20230906, end: 20230911
  29. AMIKACIN SULFATE [Concomitant]
     Active Substance: AMIKACIN SULFATE
     Indication: Febrile bone marrow aplasia
     Dosage: 3000 MG, TOTAL
     Dates: start: 20230824, end: 20230824
  30. NEBIVOLOL [Concomitant]
     Active Substance: NEBIVOLOL
     Indication: Hypertension
     Dosage: 2.5 MG, EVERY 1 DAYS
     Route: 065
     Dates: end: 20230828
  31. ZOPICLONE [Concomitant]
     Active Substance: ZOPICLONE
     Indication: Sleep disorder
     Dosage: 3.75 MG, EVERY 1 DAYS
     Route: 065
     Dates: end: 20230827
  32. ZOPICLONE [Concomitant]
     Active Substance: ZOPICLONE
     Dosage: 3.75 MG, EVERY 1 DAYS
     Route: 065
     Dates: end: 20230829
  33. CLOXACILLIN SODIUM [Concomitant]
     Active Substance: CLOXACILLIN SODIUM
     Indication: Febrile bone marrow aplasia
     Dosage: 2 G, EVERY 4 HOURS
     Dates: start: 20230825, end: 20230828
  34. AMIODARONE HYDROCHLORIDE [Concomitant]
     Active Substance: AMIODARONE HYDROCHLORIDE
     Indication: Arrhythmia
     Dosage: 200 MG, 2/DAYS
     Dates: end: 20230810
  35. PHOSPHORUS [Concomitant]
     Active Substance: PHOSPHORUS
     Indication: Prophylaxis
     Dosage: 30 DROPS, 3/DAYS
     Route: 065
     Dates: start: 20230818, end: 20230830
  36. TRAMADOL HYDROCHLORIDE [Concomitant]
     Active Substance: TRAMADOL HYDROCHLORIDE
     Indication: Abdominal pain
     Dosage: 150 MG, EVERY 1 DAYS
     Route: 065
     Dates: start: 20230809, end: 20230814
  37. TRAMADOL HYDROCHLORIDE [Concomitant]
     Active Substance: TRAMADOL HYDROCHLORIDE
     Indication: Chest pain
     Dosage: 100 MG, EVERY 1 DAYS
     Route: 065
     Dates: start: 20230814, end: 20230823
  38. KARDEGIC [Concomitant]
     Active Substance: ASPIRIN DL-LYSINE
     Indication: Peripheral artery angioplasty
     Dosage: 75 MG, 2/DAYS
     Dates: end: 20230810
  39. METHYLPREDNISOLONE [Concomitant]
     Active Substance: METHYLPREDNISOLONE
     Indication: Chemotherapy
     Dosage: 100 MG, EVERY 1 DAYS
     Dates: start: 20230809, end: 20230813
  40. DEXAMETHASONE ACETATE [Concomitant]
     Active Substance: DEXAMETHASONE ACETATE
     Indication: Chills
     Dosage: 40 MG, TOTAL
     Dates: start: 20230824, end: 20230824
  41. DEXAMETHASONE ACETATE [Concomitant]
     Active Substance: DEXAMETHASONE ACETATE
     Indication: Wheezing
  42. GABAPENTIN [Concomitant]
     Active Substance: GABAPENTIN
     Dosage: 100 MG, 3/DAYS
     Dates: start: 20230823
  43. PIPERACILLIN SODIUM [Concomitant]
     Active Substance: PIPERACILLIN SODIUM
     Indication: Febrile bone marrow aplasia
     Dosage: 4 G, EVERY 6 HOURS
     Dates: start: 20230824, end: 20230825
  44. RILMENIDINE [Concomitant]
     Active Substance: RILMENIDINE
     Indication: Hypertension
     Dosage: 1 MG, EVERY 1 DAYS
     Route: 065
     Dates: end: 20230828
  45. LIDOCAINE [Concomitant]
     Active Substance: LIDOCAINE
     Indication: Back pain
     Dosage: 5 % INTERMITTENT, EVERY 1 DAYS
     Route: 065
     Dates: start: 20230810, end: 20230906
  46. VALACYCLOVIR HYDROCHLORIDE [Concomitant]
     Active Substance: VALACYCLOVIR HYDROCHLORIDE
     Indication: Antiviral prophylaxis
     Dosage: 500 MG, EVERY 1 DAYS
     Route: 065
     Dates: start: 20230831, end: 20230902
  47. POTASSIUM CHLORIDE [Concomitant]
     Active Substance: POTASSIUM CHLORIDE
     Indication: Hypokalaemia
     Dosage: 600 MG INTERMITTENT, 6/DAYS
     Route: 065
     Dates: start: 20230828, end: 20230829
  48. POTASSIUM CHLORIDE [Concomitant]
     Active Substance: POTASSIUM CHLORIDE
     Dosage: 600 MG
     Route: 065
     Dates: start: 20230906
  49. FUROSEMIDE [Concomitant]
     Active Substance: FUROSEMIDE
     Indication: Acute kidney injury
     Dosage: 20 MG, EVERY 1 DAYS
     Route: 065
     Dates: start: 20230828, end: 20230829
  50. FUROSEMIDE [Concomitant]
     Active Substance: FUROSEMIDE
     Dosage: 40 MG, EVERY 1 DAY
     Route: 065
     Dates: start: 20230905, end: 20230906
  51. FUROSEMIDE [Concomitant]
     Active Substance: FUROSEMIDE
     Dosage: 125 MG, EVERY 1 DAYS
     Route: 065
     Dates: start: 20230908

REACTIONS (5)
  - Enterobacter pneumonia [Fatal]
  - Escherichia infection [Not Recovered/Not Resolved]
  - Staphylococcal infection [Recovered/Resolved]
  - Enterobacter pneumonia [Not Recovered/Not Resolved]
  - Acute kidney injury [Not Recovered/Not Resolved]

NARRATIVE: CASE EVENT DATE: 20230824
